FAERS Safety Report 5216240-8 (Version None)
Quarter: 2007Q1

REPORT INFORMATION
  Report Type: 
  Country: None (occurrence: None)
  Receive Date: 20070123
  Receipt Date: 20070117
  Transmission Date: 20070707
  Serious: Yes (Death)
  Sender: FDA-Public Use
  Company Number: US-ROXANE LABORATORIES, INC-2007-BP-00824RO

PATIENT
  Age: 61 Year
  Sex: Male

DRUGS (13)
  1. MIRTAZAPINE [Suspect]
  2. CODEINE SUL TAB [Suspect]
  3. ESCITALOPRAM OXALATE [Suspect]
  4. FENTANYL TRANSDERMAL SYSTEM [Suspect]
  5. HYDROCODONE BITARTRATE + ACETAMINOPHEN [Suspect]
  6. ZOLPIDEM TARTRATE [Suspect]
  7. TIZANIDINE HCL [Concomitant]
  8. LORAZEPAM [Concomitant]
  9. DEPAKOTE [Concomitant]
  10. DOXEPIN HCL [Concomitant]
  11. CELECOXIB [Concomitant]
  12. NEURONTIN [Concomitant]
  13. ZONISAMIDE [Concomitant]

REACTIONS (1)
  - ACCIDENTAL DEATH [None]
